FAERS Safety Report 6354233-8 (Version None)
Quarter: 2009Q3

REPORT INFORMATION
  Report Type: 
  Country: None (occurrence: None)
  Receive Date: 20090914
  Receipt Date: 20090527
  Transmission Date: 20100115
  Serious: No
  Sender: FDA-Public Use
  Company Number: US-BAYER-200921983NA

PATIENT
  Age: 26 Year
  Sex: Female
  Weight: 122 kg

DRUGS (1)
  1. MIRENA [Suspect]
     Indication: CONTRACEPTION
     Dosage: CONTINUOUS
     Route: 015
     Dates: start: 20081216

REACTIONS (2)
  - DYSPAREUNIA [None]
  - IUCD COMPLICATION [None]
